FAERS Safety Report 18403644 (Version 2)
Quarter: 2020Q4

REPORT INFORMATION
  Report Type: Spontaneous
  Country: IT (occurrence: IT)
  Receive Date: 20201020
  Receipt Date: 20201023
  Transmission Date: 20210114
  Serious: Yes (Other)
  Sender: FDA-Public Use
  Company Number: IT-ACCORD-204812

PATIENT
  Age: 46 Year
  Sex: Female
  Weight: 77 kg

DRUGS (3)
  1. PACLITAXEL/PACLITAXEL LIPOSOME [Suspect]
     Active Substance: PACLITAXEL
     Indication: METAPLASTIC BREAST CARCINOMA
     Route: 042
     Dates: start: 20200528
  2. CARBOPLATIN. [Suspect]
     Active Substance: CARBOPLATIN
     Indication: METAPLASTIC BREAST CARCINOMA
     Route: 042
     Dates: start: 20200525
  3. CARBOPLATIN. [Suspect]
     Active Substance: CARBOPLATIN
     Indication: BREAST CANCER METASTATIC
     Route: 042
     Dates: start: 20200528

REACTIONS (5)
  - Constipation [Recovering/Resolving]
  - Cystitis [Recovering/Resolving]
  - Off label use [Unknown]
  - Pruritus [Recovered/Resolved]
  - Conjunctival haemorrhage [Recovering/Resolving]

NARRATIVE: CASE EVENT DATE: 20200604
